FAERS Safety Report 9580975 (Version 1)
Quarter: 2013Q4

REPORT INFORMATION
  Report Type: Spontaneous
  Country: US (occurrence: US)
  Receive Date: 20131002
  Receipt Date: 20131002
  Transmission Date: 20140711
  Serious: No
  Sender: FDA-Public Use
  Company Number: US-PFIZER INC-2013278337

PATIENT
  Sex: Male

DRUGS (2)
  1. TOVIAZ [Suspect]
     Dosage: 8 MG, UNK
     Dates: start: 20130925
  2. WARFARIN [Concomitant]
     Dosage: UNK

REACTIONS (3)
  - Urine flow decreased [Unknown]
  - Dry mouth [Unknown]
  - Drug ineffective [Unknown]
